FAERS Safety Report 19167108 (Version 8)
Quarter: 2021Q3

REPORT INFORMATION
  Report Type: Other
  Country: CA (occurrence: CA)
  Receive Date: 20210422
  Receipt Date: 20210916
  Transmission Date: 20211014
  Serious: Yes (Hospitalization, Other)
  Sender: FDA-Public Use
  Company Number: CA-ROCHE-2810025

PATIENT
  Age: 70 Year
  Sex: Male

DRUGS (1)
  1. OCREVUS [Suspect]
     Active Substance: OCRELIZUMAB
     Indication: PRIMARY PROGRESSIVE MULTIPLE SCLEROSIS
     Dosage: 300 MG AT DAY 0 AND 14, THEN 600 MG EVERY 6 MONTH
     Route: 042
     Dates: start: 20191007

REACTIONS (8)
  - Vascular device infection [Not Recovered/Not Resolved]
  - Fall [Unknown]
  - Lymphopenia [Not Recovered/Not Resolved]
  - Incision site haemorrhage [Recovered/Resolved]
  - Infection [Not Recovered/Not Resolved]
  - Bacterial infection [Recovered/Resolved]
  - Pulmonary embolism [Recovered/Resolved]
  - Hip fracture [Recovering/Resolving]

NARRATIVE: CASE EVENT DATE: 20201208
